FAERS Safety Report 20013931 (Version 2)
Quarter: 2021Q4

REPORT INFORMATION
  Report Type: Report from Study
  Country: DE (occurrence: DE)
  Receive Date: 20211029
  Receipt Date: 20211103
  Transmission Date: 20220303
  Serious: Yes (Other)
  Sender: FDA-Public Use
  Company Number: DE-002147023-NVSC2021DE165910

PATIENT
  Age: 51 Year
  Sex: Female

DRUGS (2)
  1. AMITRIPTYLINE [Suspect]
     Active Substance: AMITRIPTYLINE
     Indication: Sleep disorder
     Dosage: 25 MILLIGRAM
     Route: 065
  2. AMITRIPTYLINE [Suspect]
     Active Substance: AMITRIPTYLINE
     Indication: Depression
     Dosage: 10 MG (DOSE REDUCED)
     Route: 065

REACTIONS (7)
  - Urinary retention [Recovering/Resolving]
  - Arrhythmia [Recovered/Resolved]
  - Fatigue [Recovered/Resolved]
  - Dysuria [Recovering/Resolving]
  - Cardiovascular disorder [Recovering/Resolving]
  - Abnormal faeces [Recovering/Resolving]
  - Drug ineffective [Unknown]
